FAERS Safety Report 4796460-7 (Version None)
Quarter: 2005Q3

REPORT INFORMATION
  Report Type: 
  Country: None (occurrence: None)
  Receive Date: 20050916
  Receipt Date: 20041115
  Transmission Date: 20060218
  Serious: Yes (Other)
  Sender: FDA-Public Use
  Company Number: US-JNJFOC-20040900396

PATIENT
  Age: 12 Year
  Sex: Male
  Weight: 83.9154 kg

DRUGS (1)
  1. TOPAMAX [Suspect]
     Indication: MIGRAINE
     Dosage: 50 MG, 2 IN 1 DAY ORAL
     Route: 048
     Dates: start: 20030430, end: 20040215

REACTIONS (1)
  - WEIGHT DECREASED [None]
